FAERS Safety Report 20807161 (Version 2)
Quarter: 2022Q2

REPORT INFORMATION
  Report Type: Report from Study
  Country: US (occurrence: US)
  Receive Date: 20220510
  Receipt Date: 20220629
  Transmission Date: 20220720
  Serious: Yes (Hospitalization, Other)
  Sender: FDA-Public Use
  Company Number: US-BRISTOL-MYERS SQUIBB COMPANY-2022-012611

PATIENT
  Age: 59 Year
  Sex: Male
  Weight: 149.69 kg

DRUGS (2)
  1. REVLIMID [Suspect]
     Active Substance: LENALIDOMIDE
     Indication: Plasma cell myeloma in remission
     Dosage: 5 MG DAILY FOR 21 OUT OF 28 DAYS, A3607A EXPIRY DATE- 31-MAR-2024, EXPIRY 30-JUN-2024
     Route: 048
     Dates: start: 202010
  2. REVLIMID [Suspect]
     Active Substance: LENALIDOMIDE

REACTIONS (5)
  - Back pain [Unknown]
  - Atrial fibrillation [Unknown]
  - Influenza [Unknown]
  - Dehydration [Unknown]
  - Arrhythmia [Unknown]
